FAERS Safety Report 13944475 (Version 1)
Quarter: 2017Q3

REPORT INFORMATION
  Report Type: Spontaneous
  Country: US (occurrence: US)
  Receive Date: 20170907
  Receipt Date: 20170907
  Transmission Date: 20171128
  Serious: No
  Sender: FDA-Public Use
  Company Number: US-ROCHE-1265588

PATIENT
  Sex: Male

DRUGS (11)
  1. DEXTROSE. [Concomitant]
     Active Substance: DEXTROSE
     Dosage: 5 PERCENT SODIUM CHLORIDE 0.45 PERCCENT 1000ML
     Route: 065
  2. TYLENOL [Concomitant]
     Active Substance: ACETAMINOPHEN
     Indication: INFLUENZA LIKE ILLNESS
     Route: 065
  3. ATIVAN [Concomitant]
     Active Substance: LORAZEPAM
     Indication: ANXIETY
     Route: 065
  4. DECADRON [Concomitant]
     Active Substance: DEXAMETHASONE
     Indication: INFECTION
  5. ALLOPURINOL. [Concomitant]
     Active Substance: ALLOPURINOL
  6. BENADRYL [Concomitant]
     Active Substance: DIPHENHYDRAMINE HYDROCHLORIDE
     Indication: HYPERSENSITIVITY
     Route: 065
  7. CYTOXAN [Concomitant]
     Active Substance: CYCLOPHOSPHAMIDE
     Route: 065
  8. ZOFRAN [Concomitant]
     Active Substance: ONDANSETRON HYDROCHLORIDE
     Indication: NAUSEA
     Route: 065
  9. VINCRISTINE [Concomitant]
     Active Substance: VINCRISTINE
  10. FLUDARA [Concomitant]
     Active Substance: FLUDARABINE PHOSPHATE
     Route: 065
  11. RITUXIMAB. [Suspect]
     Active Substance: RITUXIMAB
     Indication: CHRONIC LYMPHOCYTIC LEUKAEMIA
     Route: 042
     Dates: start: 201308

REACTIONS (7)
  - Pyrexia [Unknown]
  - Headache [Recovered/Resolved]
  - Confusional state [Unknown]
  - Disorientation [Unknown]
  - Neck pain [Recovered/Resolved]
  - Pollakiuria [Unknown]
  - Dry skin [Unknown]
